FAERS Safety Report 6475977-3 (Version None)
Quarter: 2009Q4

REPORT INFORMATION
  Report Type: 
  Country: None (occurrence: None)
  Receive Date: 20091119
  Receipt Date: 20090909
  Transmission Date: 20100525
  Serious: Yes (Other)
  Sender: FDA-Public Use
  Company Number: 2009SP024545

PATIENT
  Sex: Female

DRUGS (2)
  1. IMPLANON [Suspect]
     Indication: CONTRACEPTION
     Dosage: 1 DF ; 1 DF
     Dates: start: 20070101, end: 20090909
  2. IMPLANON [Suspect]
     Indication: CONTRACEPTION
     Dosage: 1 DF ; 1 DF
     Dates: start: 20090909

REACTIONS (5)
  - ABORTION SPONTANEOUS [None]
  - DRUG EXPOSURE DURING PREGNANCY [None]
  - INCORRECT DRUG ADMINISTRATION DURATION [None]
  - PREGNANCY WITH IMPLANT CONTRACEPTIVE [None]
  - PRODUCT QUALITY ISSUE [None]
